FAERS Safety Report 6782279-4 (Version None)
Quarter: 2010Q2

REPORT INFORMATION
  Report Type: 
  Country: None (occurrence: None)
  Receive Date: 20100621
  Receipt Date: 20100611
  Transmission Date: 20101027
  Serious: Yes (Other)
  Sender: FDA-Public Use
  Company Number: US-JNJFOC-20100502037

PATIENT
  Age: 9 Year
  Sex: Male

DRUGS (2)
  1. CHILDREN'S MOTRIN [Suspect]
     Route: 048
  2. CHILDREN'S MOTRIN [Suspect]
     Indication: MALAISE
     Route: 048

REACTIONS (3)
  - PNEUMONIA [None]
  - PRODUCT QUALITY ISSUE [None]
  - VOMITING [None]
